FAERS Safety Report 6189683-6 (Version None)
Quarter: 2009Q2

REPORT INFORMATION
  Report Type: 
  Country: None (occurrence: None)
  Receive Date: 20090512
  Receipt Date: 20090512
  Transmission Date: 20091009
  Serious: Yes (Life-Threatening)
  Sender: FDA-Public Use
  Company Number: None

PATIENT
  Age: 52 Year
  Sex: Female
  Weight: 102.0593 kg

DRUGS (1)
  1. LISINOPRIL [Suspect]
     Indication: RENAL DISORDER
     Dosage: 1 TABLET EVERY DAY ONCE A DAY PO
     Route: 048
     Dates: start: 20090303, end: 20090310

REACTIONS (2)
  - REFUSAL OF TREATMENT BY PATIENT [None]
  - SUICIDAL IDEATION [None]
